FAERS Safety Report 5676541-6 (Version None)
Quarter: 2008Q1

REPORT INFORMATION
  Report Type: 
  Country: None (occurrence: None)
  Receive Date: 20080321
  Receipt Date: 20080321
  Transmission Date: 20080703
  Serious: Yes (Other)
  Sender: FDA-Public Use
  Company Number: None

PATIENT
  Age: 49 Year
  Sex: Female
  Weight: 61.2356 kg

DRUGS (1)
  1. SUDAFED S.A. [Suspect]
     Indication: SINUS CONGESTION
     Dosage: 2 TABLETS EVERY 4 TO 6HOURS
     Dates: start: 20080316, end: 20080316

REACTIONS (3)
  - MALAISE [None]
  - MEDICATION ERROR [None]
  - PHARMACEUTICAL PRODUCT COMPLAINT [None]
